FAERS Safety Report 8925591 (Version 3)
Quarter: 2019Q4

REPORT INFORMATION
  Report Type: Spontaneous
  Country: US (occurrence: US)
  Receive Date: 20121126
  Receipt Date: 20191219
  Transmission Date: 20200122
  Serious: Yes (Hospitalization, Other)
  Sender: FDA-Public Use
  Company Number: US-UCBSA-070746

PATIENT
  Age: 55 Year
  Sex: Male

DRUGS (17)
  1. CIMZIA [Suspect]
     Active Substance: CERTOLIZUMAB PEGOL
     Indication: CROHN^S DISEASE
     Dosage: 400 MG, EV 4 WEEKS
     Route: 058
     Dates: start: 20120612, end: 20121018
  2. PURINETHOL [Concomitant]
     Active Substance: MERCAPTOPURINE
     Dosage: 50 MG, ONCE DAILY (QD)
  3. CALCIUM [Concomitant]
     Active Substance: CALCIUM
     Dosage: WITH MEAL
  4. CIPRO [Concomitant]
     Active Substance: CIPROFLOXACIN HYDROCHLORIDE
     Dosage: 500 MG, 2X/DAY (BID)
     Route: 048
     Dates: start: 201209
  5. PREDNISONE. [Concomitant]
     Active Substance: PREDNISONE
     Dosage: 30 MG, 2X/DAY (BID)
     Route: 048
     Dates: start: 201209
  6. FISH OIL [Concomitant]
     Active Substance: FISH OIL
     Dosage: WITH MEAL
  7. VITAMIN C [Concomitant]
     Active Substance: ASCORBIC ACID
     Dosage: CHEWABLE TABLET; AS DIRECTED
     Route: 048
  8. VITAMIN B12 [Concomitant]
     Active Substance: CYANOCOBALAMIN
     Dosage: UNDER THE TONGUE AND ALLOW TO DISSOLVE
     Route: 060
  9. FLAGYL [Concomitant]
     Active Substance: METRONIDAZOLE\METRONIDAZOLE HYDROCHLORIDE
     Dosage: 500 MG, 2X/DAY (BID)
     Route: 048
     Dates: start: 201209
  10. BENTYL [Concomitant]
     Active Substance: DICYCLOMINE HYDROCHLORIDE
     Dosage: 20 MG, 4X/DAY (QID)
  11. IRON [Concomitant]
     Active Substance: IRON
     Dosage: 65 FE
  12. ASPIR-81 [Concomitant]
     Active Substance: ASPIRIN
     Dosage: 81 MG DELAYED RELEASE TABLET
  13. ENTOCORT EC [Concomitant]
     Active Substance: BUDESONIDE
     Dosage: STRENGTH:3MG (3 CAPSULES ONCE A DAY)
     Route: 048
     Dates: end: 201209
  14. 6-MP [Concomitant]
     Active Substance: MERCAPTOPURINE
  15. MULTIVITAMINS [Concomitant]
     Active Substance: VITAMINS
     Dosage: AS DIRECTED
  16. PRILOSEC [Concomitant]
     Active Substance: OMEPRAZOLE MAGNESIUM
     Dosage: DELAYED RELEASE TABLET
  17. POLY IRON 150 [Concomitant]
     Dosage: 150 MG AS REQUIRED 1 CAPSULE .

REACTIONS (2)
  - Oral candidiasis [Recovered/Resolved]
  - Crohn^s disease [Recovered/Resolved]

NARRATIVE: CASE EVENT DATE: 20120905
